FAERS Safety Report 5140053-9 (Version None)
Quarter: 2006Q4

REPORT INFORMATION
  Report Type: 
  Country: None (occurrence: None)
  Receive Date: 20061024
  Receipt Date: 20061003
  Transmission Date: 20070319
  Serious: No
  Sender: FDA-Public Use
  Company Number: US200608001837

PATIENT
  Age: 57 Year
  Sex: Male

DRUGS (3)
  1. ZYPREXA [Suspect]
     Indication: BIPOLAR I DISORDER
     Dosage: 10 MG, UNK, UNK
  2. VENLAFAXINE HCL [Concomitant]
  3. LAMOTRIGINE [Concomitant]

REACTIONS (2)
  - LABORATORY TEST INTERFERENCE [None]
  - NO ADVERSE DRUG EFFECT [None]
